FAERS Safety Report 24416088 (Version 1)
Quarter: 2024Q4

REPORT INFORMATION
  Report Type: Other
  Country: FR (occurrence: FR)
  Receive Date: 20241009
  Receipt Date: 20241009
  Transmission Date: 20250115
  Serious: Yes (Hospitalization)
  Sender: STRIDES
  Company Number: FR-STRIDES ARCOLAB LIMITED-2024SP012784

PATIENT
  Age: 47 Year
  Sex: Male
  Weight: 73 kg

DRUGS (1)
  1. IBUPROFEN [Suspect]
     Active Substance: IBUPROFEN
     Indication: Chest pain
     Dosage: 400 MG X2/J
     Route: 048
     Dates: start: 20240826, end: 20240909

REACTIONS (1)
  - Pleural infection bacterial [Recovered/Resolved]

NARRATIVE: CASE EVENT DATE: 20240909
